FAERS Safety Report 6561833-9 (Version None)
Quarter: 2010Q1

REPORT INFORMATION
  Report Type: 
  Country: None (occurrence: None)
  Receive Date: 20100130
  Receipt Date: 20091028
  Transmission Date: 20100710
  Serious: No
  Sender: FDA-Public Use
  Company Number: US-ABBOTT-09P-163-0606225-00

PATIENT
  Sex: Female
  Weight: 63.56 kg

DRUGS (13)
  1. HUMIRA [Suspect]
     Indication: CROHN'S DISEASE
     Dates: start: 20090201, end: 20090901
  2. HUMIRA [Suspect]
     Indication: CROHN'S DISEASE
     Dates: start: 20090901
  3. LASIX [Concomitant]
     Indication: OEDEMA PERIPHERAL
  4. LASIX [Concomitant]
     Indication: CELLULITIS
  5. LEVOXYL [Concomitant]
     Indication: THYROID DISORDER
  6. POTASSIUM CHLORIDE [Concomitant]
     Indication: MINERAL SUPPLEMENTATION
  7. SIMVASTATIN [Concomitant]
     Indication: BLOOD CHOLESTEROL INCREASED
  8. VITAMIN B-COMPLEX, PLAIN [Concomitant]
     Indication: VITAMIN SUPPLEMENTATION
  9. VITAMIN D [Concomitant]
     Indication: VITAMIN SUPPLEMENTATION
  10. FORTICAL [Concomitant]
     Indication: OSTEOPOROSIS
     Route: 042
  11. FENTANYL [Concomitant]
     Indication: ARTHRALGIA
  12. LIDODERM [Concomitant]
     Indication: ARTHRALGIA
  13. NEXIUM [Concomitant]
     Indication: GASTROOESOPHAGEAL REFLUX DISEASE

REACTIONS (5)
  - DIZZINESS [None]
  - INJECTION SITE HAEMATOMA [None]
  - INJECTION SITE PAIN [None]
  - NASAL CONGESTION [None]
  - SOMNOLENCE [None]
